FAERS Safety Report 6229955-X (Version None)
Quarter: 2009Q2

REPORT INFORMATION
  Report Type: 
  Country: None (occurrence: None)
  Receive Date: 20090615
  Receipt Date: 20090609
  Transmission Date: 20091009
  Serious: Yes (Other)
  Sender: FDA-Public Use
  Company Number: BR-ASTRAZENECA-2009UW14918

PATIENT
  Sex: Female

DRUGS (5)
  1. ZOLADEX [Suspect]
     Indication: ENDOMETRIOSIS
     Route: 058
     Dates: start: 20081001
  2. ZOLADEX [Suspect]
     Route: 058
     Dates: start: 20081101
  3. ZOLADEX [Suspect]
     Route: 058
     Dates: start: 20081201
  4. ZOLADEX [Suspect]
     Route: 058
     Dates: start: 20090408
  5. ZOLADEX [Suspect]
     Route: 058
     Dates: start: 20090515

REACTIONS (3)
  - HORMONE LEVEL ABNORMAL [None]
  - OVARIAN CYST [None]
  - SURGERY [None]
